FAERS Safety Report 14617093 (Version 4)
Quarter: 2018Q2

REPORT INFORMATION
  Report Type: Spontaneous
  Country: RU (occurrence: RU)
  Receive Date: 20180309
  Receipt Date: 20180604
  Transmission Date: 20180711
  Serious: Yes (Other)
  Sender: FDA-Public Use
  Company Number: RU-ASTRAZENECA-2018SE28433

PATIENT
  Age: 69 Year
  Sex: Male
  Weight: 92 kg

DRUGS (12)
  1. ATORVASTATIN [Concomitant]
     Active Substance: ATORVASTATIN
  2. INDAPAMIDE. [Concomitant]
     Active Substance: INDAPAMIDE
  3. VEROSPIRON [Concomitant]
     Active Substance: SPIRONOLACTONE
  4. DIABETON [Concomitant]
     Active Substance: GLICLAZIDE
  5. BRILINTA [Suspect]
     Active Substance: TICAGRELOR
     Indication: MYOCARDIAL INFARCTION
     Route: 048
     Dates: start: 201712, end: 201801
  6. LISINOPRIL. [Concomitant]
     Active Substance: LISINOPRIL
  7. CANEPHRON [Concomitant]
     Active Substance: HERBALS
  8. CARDIOMAGNYL [Concomitant]
     Active Substance: ASPIRIN\MAGNESIUM HYDROXIDE
  9. BRILINTA [Suspect]
     Active Substance: TICAGRELOR
     Indication: MYOCARDIAL INFARCTION
     Route: 048
  10. PROSTAMOL UNO [Concomitant]
  11. OMEZ [Concomitant]
     Active Substance: OMEPRAZOLE
  12. BISOPROLOL [Concomitant]
     Active Substance: BISOPROLOL

REACTIONS (9)
  - Colon cancer [Unknown]
  - Large intestine polyp [Unknown]
  - Gastric disorder [Unknown]
  - Off label use [Not Recovered/Not Resolved]
  - Product use issue [Not Recovered/Not Resolved]
  - Benign gastrointestinal neoplasm [Unknown]
  - Asthenia [Not Recovered/Not Resolved]
  - Rectal neoplasm [Unknown]
  - Gallbladder polyp [Unknown]

NARRATIVE: CASE EVENT DATE: 20180121
